FAERS Safety Report 8579749-5 (Version None)
Quarter: 2012Q3

REPORT INFORMATION
  Report Type: 
  Country: None (occurrence: None)
  Receive Date: 20120808
  Receipt Date: 20120801
  Transmission Date: 20120928
  Serious: Yes (Hospitalization)
  Sender: FDA-Public Use
  Company Number: FR-ACTELION-A-CH2012-62512

PATIENT
  Age: 68 Year
  Sex: Male
  Weight: 70 kg

DRUGS (10)
  1. LASIX [Concomitant]
     Dosage: 40 MG, UNK
     Dates: start: 20110901
  2. AMLODIPINE BESYLATE [Concomitant]
     Dosage: UNK
     Dates: start: 20111012, end: 20111226
  3. ARANESP [Concomitant]
     Dosage: 40 UG, UNK
     Dates: start: 20111101
  4. PERINDOPRIL ERBUMINE [Concomitant]
     Dosage: 2.5 MG, UNK
     Dates: start: 20111101
  5. TRACLEER [Suspect]
     Dosage: 62.5 MG, BID
     Route: 048
     Dates: start: 20111030, end: 20111127
  6. ASPIRIN [Concomitant]
     Dosage: 75 MG, UNK
     Dates: start: 20111101
  7. AVODART [Concomitant]
     Dosage: UNK
     Dates: start: 20111101
  8. TRACLEER [Suspect]
     Indication: SCLERODERMA RENAL CRISIS
     Dosage: 125 MG, BID
     Route: 048
     Dates: start: 20111127
  9. ALFUZOSIN HYDROCHLORIDE [Concomitant]
  10. PREDNISONE TAB [Concomitant]
     Dosage: UNK
     Dates: start: 20110421

REACTIONS (8)
  - BLADDER CATHETERISATION [None]
  - INGUINAL HERNIA REPAIR [None]
  - TRANSURETHRAL PROSTATECTOMY [None]
  - URINARY RETENTION [None]
  - PROSTATITIS [None]
  - BENIGN PROSTATIC HYPERPLASIA [None]
  - INGUINAL HERNIA [None]
  - PYREXIA [None]
